FAERS Safety Report 17032611 (Version 5)
Quarter: 2020Q1

REPORT INFORMATION
  Report Type: Spontaneous
  Country: CA (occurrence: CA)
  Receive Date: 20191114
  Receipt Date: 20200323
  Transmission Date: 20200409
  Serious: Yes (Other)
  Sender: FDA-Public Use
  Company Number: CA-CELLTRION INC.-2019CA022209

PATIENT

DRUGS (31)
  1. INFLECTRA [Suspect]
     Active Substance: INFLIXIMAB-DYYB
     Dosage: 800 MG Q 6 WEEKS
     Route: 042
     Dates: start: 20190715
  2. INFLECTRA [Suspect]
     Active Substance: INFLIXIMAB-DYYB
     Dosage: 800 MG Q 6 WEEKS
     Route: 042
     Dates: start: 20190910
  3. HYDROMORPHONE HYDROCHLORIDE. [Concomitant]
     Active Substance: HYDROMORPHONE HYDROCHLORIDE
     Dosage: UNK, AS NEEDED (2-6 MG AS NEEDED ONCE A DAY)
  4. METHOTREXATE SODIUM. [Concomitant]
     Active Substance: METHOTREXATE SODIUM
     Dosage: 20 MG, WEEKLY (INJECTION)
     Route: 065
     Dates: start: 201905
  5. FOLIC ACID. [Concomitant]
     Active Substance: FOLIC ACID
     Dosage: 5MG 1X/DAY
     Route: 048
  6. VITAMIN B12 [VITAMIN B12 NOS] [Concomitant]
     Active Substance: CYANOCOBALAMIN
     Dosage: UNK, 1X/DAY
     Route: 048
  7. INFLECTRA [Suspect]
     Active Substance: INFLIXIMAB-DYYB
     Dosage: 800 MG Q 6 WEEKS
     Route: 042
     Dates: start: 20190910
  8. INFLECTRA [Suspect]
     Active Substance: INFLIXIMAB-DYYB
     Dosage: 800 MG Q 6 WEEKS
     Route: 042
  9. INFLECTRA [Suspect]
     Active Substance: INFLIXIMAB-DYYB
     Dosage: UNK
  10. INFLECTRA [Suspect]
     Active Substance: INFLIXIMAB-DYYB
     Dosage: 1000 MG, Q 6 WEEKS
     Route: 042
     Dates: start: 20191220
  11. TELMISARTAN. [Concomitant]
     Active Substance: TELMISARTAN
     Dosage: 40MG 1X/DAY
     Route: 048
  12. DIPHENHYDRAMINE. [Concomitant]
     Active Substance: DIPHENHYDRAMINE
     Dosage: 50 MG, UNK
     Dates: start: 20191104
  13. INFLECTRA [Suspect]
     Active Substance: INFLIXIMAB-DYYB
     Dosage: 800 MG Q 6 WEEKS
     Route: 042
     Dates: start: 20190715
  14. INFLECTRA [Suspect]
     Active Substance: INFLIXIMAB-DYYB
     Dosage: 1000 MG, Q 6 WEEKS
     Route: 042
     Dates: start: 20191104
  15. VITAMIN C [Concomitant]
     Active Substance: ASCORBIC ACID
     Dosage: UNK
  16. INFLECTRA [Suspect]
     Active Substance: INFLIXIMAB-DYYB
     Dosage: 1000 MG, Q 6 WEEKS
     Route: 042
     Dates: start: 20200131
  17. HYDROCORTISONE. [Concomitant]
     Active Substance: HYDROCORTISONE
     Dosage: 100 MG, UNK
     Dates: start: 20191104
  18. INFLECTRA [Suspect]
     Active Substance: INFLIXIMAB-DYYB
     Indication: CROHN^S DISEASE
     Dosage: 500 MG Q 0, 2, 6 WEEKS THEN EVERY 8 WEEKS
     Route: 042
     Dates: start: 20190604, end: 20190617
  19. INFLECTRA [Suspect]
     Active Substance: INFLIXIMAB-DYYB
     Dosage: 1000 MG, Q 6 WEEKS
     Route: 042
     Dates: start: 20200313
  20. METHOTREXATE SODIUM. [Concomitant]
     Active Substance: METHOTREXATE SODIUM
     Dosage: 20 MG, WEEKLY (INJECTION)
     Dates: start: 201801, end: 201803
  21. INFLECTRA [Suspect]
     Active Substance: INFLIXIMAB-DYYB
     Indication: RHEUMATOID ARTHRITIS
     Dosage: 500 MG Q 0, 2, 6 WEEKS THEN EVERY 8 WEEKS
     Route: 042
     Dates: start: 20190617
  22. INFLECTRA [Suspect]
     Active Substance: INFLIXIMAB-DYYB
     Dosage: 1000 MG, Q 6 WEEKS
     Route: 042
     Dates: start: 20191220
  23. VITAMIN B [Concomitant]
     Active Substance: VITAMIN B
     Dosage: UNK
  24. ACETAMINOPHEN. [Concomitant]
     Active Substance: ACETAMINOPHEN
     Dosage: 650 MG, UNK
     Dates: start: 20191104
  25. INFLECTRA [Suspect]
     Active Substance: INFLIXIMAB-DYYB
     Dosage: 1000 MG, Q 6 WEEKS
     Route: 042
     Dates: start: 20191104
  26. INFLECTRA [Suspect]
     Active Substance: INFLIXIMAB-DYYB
     Dosage: 1000 MG, Q 6 WEEKS
     Route: 042
     Dates: start: 20191220
  27. INFLECTRA [Suspect]
     Active Substance: INFLIXIMAB-DYYB
     Dosage: 1000 MG, Q 6 WEEKS
     Route: 042
     Dates: start: 20200131
  28. CALCIUM [Concomitant]
     Active Substance: CALCIUM
     Dosage: UNK
  29. INFLECTRA [Suspect]
     Active Substance: INFLIXIMAB-DYYB
     Dosage: 1000 MG, Q 6 WEEKS
     Route: 042
     Dates: start: 20200131
  30. PREDNISONE. [Concomitant]
     Active Substance: PREDNISONE
     Dosage: 40 MG, (TAPER TO 0 MG)
     Route: 065
     Dates: start: 201901
  31. CITALOPRAM [Concomitant]
     Active Substance: CITALOPRAM HYDROBROMIDE
     Dosage: 40MG, 1X/DAY
     Route: 048

REACTIONS (13)
  - Uveitis [Unknown]
  - Arthralgia [Not Recovered/Not Resolved]
  - Headache [Recovering/Resolving]
  - Blood pressure fluctuation [Unknown]
  - Fatigue [Unknown]
  - Hypotension [Unknown]
  - Anal fissure [Unknown]
  - Condition aggravated [Unknown]
  - Drug ineffective [Unknown]
  - Off label use [Unknown]
  - Productive cough [Recovering/Resolving]
  - Blood pressure fluctuation [Recovered/Resolved]
  - Aphthous ulcer [Unknown]

NARRATIVE: CASE EVENT DATE: 20190604
